FAERS Safety Report 22597875 (Version 1)
Quarter: 2023Q2

REPORT INFORMATION
  Report Type: Spontaneous
  Country: GB (occurrence: GB)
  Receive Date: 20230614
  Receipt Date: 20230614
  Transmission Date: 20230722
  Serious: Yes (Other)
  Sender: FDA-Public Use
  Company Number: None

PATIENT
  Sex: Female

DRUGS (6)
  1. RISPERIDONE [Suspect]
     Active Substance: RISPERIDONE
     Indication: Schizophrenia
     Dosage: UNK,  UNK
     Dates: start: 1997
  2. RISPERIDONE [Suspect]
     Active Substance: RISPERIDONE
     Dosage: 3 MG, ONCE PER DAY
     Dates: start: 2015
  3. RISPERIDONE [Suspect]
     Active Substance: RISPERIDONE
     Dosage: 2 MG, ONCE PER DAY (AT NIGHT)
     Dates: start: 2016
  4. RISPERIDONE [Suspect]
     Active Substance: RISPERIDONE
     Dosage: 3 MG, ONCE PER DAY (INCREASED TO 3MG AT NIGHT)
     Dates: start: 2016
  5. RISPERIDONE [Suspect]
     Active Substance: RISPERIDONE
     Dosage: 4 MG, ONCE PER DAY
  6. PROCYCLIDINE [Suspect]
     Active Substance: PROCYCLIDINE
     Indication: Schizophrenia
     Dosage: 2.5 MG, 3 TIMES PER DAY (BETWEEN 2016 AND 2022)

REACTIONS (4)
  - Tardive dyskinesia [Recovering/Resolving]
  - Dystonia [Recovering/Resolving]
  - Loss of personal independence in daily activities [Recovering/Resolving]
  - Tic [Recovering/Resolving]

NARRATIVE: CASE EVENT DATE: 19970101
